FAERS Safety Report 8592098-4 (Version None)
Quarter: 2012Q3

REPORT INFORMATION
  Report Type: 
  Country: None (occurrence: None)
  Receive Date: 20120814
  Receipt Date: 20120808
  Transmission Date: 20120928
  Serious: Yes (Other)
  Sender: FDA-Public Use
  Company Number: AR-AMGEN-ARGSP2012023107

PATIENT
  Age: 44 Year
  Sex: Female

DRUGS (2)
  1. METFORMIN HYDROCHLORIDE [Concomitant]
     Dosage: UNK
     Route: 048
  2. ENBREL [Suspect]
     Indication: PSORIATIC ARTHROPATHY
     Dosage: 50 MG, WEEKLY
     Route: 058
     Dates: start: 20111003, end: 20120301

REACTIONS (5)
  - PSORIATIC ARTHROPATHY [None]
  - PROTEIN C INCREASED [None]
  - BONE DEFORMITY [None]
  - JOINT SWELLING [None]
  - MUSCULAR WEAKNESS [None]
